FAERS Safety Report 6186218-9 (Version None)
Quarter: 2009Q2

REPORT INFORMATION
  Report Type: 
  Country: None (occurrence: None)
  Receive Date: 20090511
  Receipt Date: 20090429
  Transmission Date: 20091009
  Serious: Yes (Other)
  Sender: FDA-Public Use
  Company Number: PHHY2009BR16664

PATIENT
  Sex: Female
  Weight: 79 kg

DRUGS (3)
  1. ESTRADERM [Suspect]
     Dosage: 100 MCG
     Route: 062
     Dates: start: 20040101
  2. ESTRADERM [Suspect]
     Dosage: 100 MCG,FOR LAST 3 MONTHS
     Route: 062
  3. CLIANE [Suspect]

REACTIONS (14)
  - AGEUSIA [None]
  - ANOSMIA [None]
  - APPLICATION SITE REACTION [None]
  - DYSPNOEA [None]
  - ERYTHEMA [None]
  - FEELING HOT [None]
  - HYPERHIDROSIS [None]
  - INFLAMMATION [None]
  - INSOMNIA [None]
  - MOUTH BREATHING [None]
  - NASAL CONGESTION [None]
  - PAIN [None]
  - RASH MACULAR [None]
  - TREATMENT NONCOMPLIANCE [None]
